FAERS Safety Report 5188105-1 (Version None)
Quarter: 2006Q4

REPORT INFORMATION
  Report Type: 
  Country: None (occurrence: None)
  Receive Date: 20061214
  Receipt Date: 20061201
  Transmission Date: 20070319
  Serious: Yes (Other)
  Sender: FDA-Public Use
  Company Number: HQWYE076101DEC06

PATIENT
  Age: 72 Year
  Sex: Male

DRUGS (10)
  1. CORDARONE [Suspect]
     Indication: ARRHYTHMIA
     Dosage: 200 MG 1X PER 1 DAY ORAL
     Route: 048
     Dates: start: 19970101
  2. AVAPRO [Suspect]
     Indication: HYPERTENSION
     Dosage: 200 MG 1X PER 1 DAY ORAL
     Route: 048
     Dates: start: 20050101, end: 20050701
  3. AVAPRO [Suspect]
     Dosage: 75 MG 1X PER 1 DAY ORAL
     Route: 048
     Dates: end: 20050101
  4. AVAPRO [Suspect]
     Dosage: 150 MG 1X PER 1 DAY ORAL
     Route: 048
     Dates: start: 20050101, end: 20050101
  5. AVAPRO [Suspect]
     Dosage: 75 MG 1X PER 1 DAY ORAL
     Route: 048
     Dates: start: 20061118
  6. AVAPRO [Suspect]
     Dosage: 150 MG 1X PER 1 DAY ORAL
     Route: 048
     Dates: start: 20050701, end: 20050801
  7. AVAPRO [Suspect]
     Dosage: 300 MG 1X PER 1 DAY ORAL
     Route: 048
     Dates: start: 20050801, end: 20061113
  8. AVAPRO [Suspect]
     Dosage: 150 MG 1X PER 1 DAY ORAL
     Route: 048
     Dates: start: 20061114, end: 20061117
  9. PLAVIX [Suspect]
     Dosage: 75 MG 1X PER 1 DAY ORAL
     Route: 048
     Dates: start: 20021105, end: 20060822
  10. APO-ATENOL (ATENOLOL) [Concomitant]

REACTIONS (6)
  - ARRHYTHMIA [None]
  - BLOOD PRESSURE FLUCTUATION [None]
  - DRUG INEFFECTIVE [None]
  - HEART RATE DECREASED [None]
  - STENT OCCLUSION [None]
  - VENTRICULAR EXTRASYSTOLES [None]
